FAERS Safety Report 6329562-4 (Version None)
Quarter: 2009Q3

REPORT INFORMATION
  Report Type: 
  Country: None (occurrence: None)
  Receive Date: 20090824
  Receipt Date: 20090824
  Transmission Date: 20100115
  Serious: Yes (Other)
  Sender: FDA-Public Use
  Company Number: None

PATIENT
  Age: 4 Year
  Sex: Male
  Weight: 25.855 kg

DRUGS (1)
  1. RISPERIDONE [Suspect]
     Indication: AUTISM
     Dosage: 0.5ML DAILY PO
     Route: 048
     Dates: start: 20090719, end: 20090801

REACTIONS (4)
  - CRYING [None]
  - DRUG TOLERANCE [None]
  - PRODUCT QUALITY ISSUE [None]
  - SELF INJURIOUS BEHAVIOUR [None]
